FAERS Safety Report 5877714-X (Version None)
Quarter: 2008Q3

REPORT INFORMATION
  Report Type: 
  Country: None (occurrence: None)
  Receive Date: 20080911
  Receipt Date: 20080829
  Transmission Date: 20090109
  Serious: Yes (Hospitalization)
  Sender: FDA-Public Use
  Company Number: DE-JNJFOC-20080703174

PATIENT
  Age: 46 Year
  Sex: Male
  Weight: 105 kg

DRUGS (2)
  1. REMICADE [Suspect]
     Route: 042
  2. REMICADE [Suspect]
     Indication: PSORIASIS
     Route: 042

REACTIONS (8)
  - ABDOMINAL PAIN [None]
  - AGITATION [None]
  - CHEST PAIN [None]
  - CONFUSIONAL STATE [None]
  - HYPOTENSION [None]
  - INFUSION RELATED REACTION [None]
  - SYNCOPE [None]
  - TACHYCARDIA [None]
